FAERS Safety Report 8763308 (Version 1)
Quarter: 2012Q4

REPORT INFORMATION
  Report Type: 
  Country: US (occurrence: US)
  Receive Date: 20120831
  Receipt Date: 20120831
  Transmission Date: 20130627
  Serious: No
  Sender: FDA-Public Use
  Company Number: US-PFIZER INC-2012214320

PATIENT
  Age: 73 Year
  Sex: Female
  Weight: 61.22 kg

DRUGS (2)
  1. CHANTIX [Suspect]
     Indication: SMOKING CESSATION THERAPY
     Dosage: 0.5 mg, 1x/day
     Route: 048
     Dates: start: 20120819, end: 20120829
  2. ADVAIR DISKUS [Concomitant]
     Dosage: 250/50 ug, 2x/day

REACTIONS (3)
  - Malaise [Recovering/Resolving]
  - Vomiting [Recovering/Resolving]
  - Nausea [Recovering/Resolving]
